FAERS Safety Report 23506498 (Version 1)
Quarter: 2024Q1

REPORT INFORMATION
  Report Type: Spontaneous
  Country: US (occurrence: US)
  Receive Date: 20240209
  Receipt Date: 20240209
  Transmission Date: 20240410
  Serious: No
  Sender: FDA-Public Use
  Company Number: US-IBSA PHARMA INC.-2023IBS000158

PATIENT

DRUGS (5)
  1. TIROSINT-SOL [Suspect]
     Active Substance: LEVOTHYROXINE SODIUM
     Indication: Thyroid hormone replacement therapy
     Dosage: 88 MICROGRAM QD
     Route: 048
     Dates: start: 201803
  2. TIROSINT-SOL [Suspect]
     Active Substance: LEVOTHYROXINE SODIUM
     Dosage: 88 MICROGRAM QD X 6 DAYS
     Route: 048
     Dates: start: 20220301
  3. TIROSINT-SOL [Suspect]
     Active Substance: LEVOTHYROXINE SODIUM
     Dosage: 100 MICROGRAM ONCE A WEEK
     Route: 048
     Dates: start: 20220301
  4. TIROSINT-SOL [Suspect]
     Active Substance: LEVOTHYROXINE SODIUM
     Dosage: 75 MICROGRAM ONCE A WEEK
     Dates: start: 202212
  5. TIROSINT-SOL [Suspect]
     Active Substance: LEVOTHYROXINE SODIUM
     Dosage: 88 MICROGRAM, AS DIRECTED
     Route: 048

REACTIONS (5)
  - Weight increased [Not Recovered/Not Resolved]
  - Alopecia [Unknown]
  - Headache [Not Recovered/Not Resolved]
  - Fatigue [Unknown]
  - Blood thyroid stimulating hormone abnormal [Unknown]

NARRATIVE: CASE EVENT DATE: 20220101
